FAERS Safety Report 5619594-3 (Version None)
Quarter: 2008Q1

REPORT INFORMATION
  Report Type: 
  Country: None (occurrence: None)
  Receive Date: 20080205
  Receipt Date: 20080205
  Transmission Date: 20080703
  Serious: No
  Sender: FDA-Public Use
  Company Number: None

PATIENT
  Age: 52 Year
  Sex: Female
  Weight: 80.2867 kg

DRUGS (2)
  1. LEVAQUIN [Suspect]
     Indication: DISEASE RECURRENCE
     Dosage: 750 MG 1 A DAY FOR 10 DAY PO
     Route: 048
     Dates: start: 20080111, end: 20080119
  2. LEVAQUIN [Suspect]
     Indication: SINUSITIS
     Dosage: 750 MG 1 A DAY FOR 10 DAY PO
     Route: 048
     Dates: start: 20080111, end: 20080119

REACTIONS (5)
  - ARTHRALGIA [None]
  - COUGH [None]
  - JOINT CREPITATION [None]
  - JOINT SWELLING [None]
  - PAIN IN EXTREMITY [None]
